FAERS Safety Report 9030843 (Version 2)
Quarter: 2013Q1

REPORT INFORMATION
  Report Type: Spontaneous
  Country: US (occurrence: US)
  Receive Date: 20130123
  Receipt Date: 20130213
  Transmission Date: 20140127
  Serious: Yes (Other)
  Sender: FDA-Public Use
  Company Number: US-BAYER-2013-008163

PATIENT
  Age: 25 Year
  Sex: Female
  Weight: 60 kg

DRUGS (3)
  1. MIRENA [Suspect]
     Indication: CONTRACEPTION
     Dosage: 20 MCG/24HR, CONT
     Route: 015
     Dates: start: 20130117, end: 20130117
  2. ANAESTHETICS, LOCAL [Concomitant]
  3. MISOPROSTOL [Concomitant]

REACTIONS (5)
  - Device difficult to use [None]
  - Device difficult to use [None]
  - Procedural pain [Recovered/Resolved]
  - Complication of device insertion [None]
  - Device dislocation [None]
